FAERS Safety Report 18278158 (Version 1)
Quarter: 2020Q3

REPORT INFORMATION
  Report Type: Spontaneous
  Country: US (occurrence: US)
  Receive Date: 20200917
  Receipt Date: 20200917
  Transmission Date: 20201103
  Serious: Yes (Hospitalization, Other)
  Sender: FDA-Public Use
  Company Number: US-ASTRAZENECA-2020SF16742

PATIENT
  Age: 19484 Day
  Sex: Female

DRUGS (45)
  1. VENLAFAXINE [Concomitant]
     Active Substance: VENLAFAXINE HYDROCHLORIDE
  2. HYDROCODONE BITARTRATE AND ACETAMINOPHEN [Concomitant]
     Active Substance: ACETAMINOPHEN\HYDROCODONE BITARTRATE
  3. ISOSORBIDE MONONITRATE. [Concomitant]
     Active Substance: ISOSORBIDE MONONITRATE
  4. CHLORHEXIDINE [Concomitant]
     Active Substance: CHLORHEXIDINE
  5. PREVACID [Suspect]
     Active Substance: LANSOPRAZOLE
     Indication: GASTROOESOPHAGEAL REFLUX DISEASE
     Route: 065
  6. PREVACID [Suspect]
     Active Substance: LANSOPRAZOLE
     Indication: GASTROOESOPHAGEAL REFLUX DISEASE
     Dosage: GENERIC
     Route: 065
  7. TIZANIDINE. [Concomitant]
     Active Substance: TIZANIDINE
  8. OLANZAPINE. [Concomitant]
     Active Substance: OLANZAPINE
  9. TRAMADOL. [Concomitant]
     Active Substance: TRAMADOL
  10. NITROFURANTOIN. [Concomitant]
     Active Substance: NITROFURANTOIN
  11. OMEPRAZOLE. [Suspect]
     Active Substance: OMEPRAZOLE
     Indication: GASTROOESOPHAGEAL REFLUX DISEASE
     Route: 065
  12. PREVACID [Suspect]
     Active Substance: LANSOPRAZOLE
     Indication: GASTROOESOPHAGEAL REFLUX DISEASE
     Route: 065
     Dates: start: 2000, end: 2015
  13. LYRICA [Concomitant]
     Active Substance: PREGABALIN
  14. CALCITRIOL. [Concomitant]
     Active Substance: CALCITRIOL
  15. AMLODIPINE BESYLATE. [Concomitant]
     Active Substance: AMLODIPINE BESYLATE
  16. DULAGLUTIDE. [Concomitant]
     Active Substance: DULAGLUTIDE
  17. NOVOLOG [Concomitant]
     Active Substance: INSULIN ASPART
  18. TROPICAMIDE. [Concomitant]
     Active Substance: TROPICAMIDE
  19. CLONAZEPAM. [Concomitant]
     Active Substance: CLONAZEPAM
  20. VITAMIN B12 [Concomitant]
     Active Substance: CYANOCOBALAMIN
  21. DONEPEZIL. [Concomitant]
     Active Substance: DONEPEZIL
  22. SODIUM BICARBONATE. [Concomitant]
     Active Substance: SODIUM BICARBONATE
  23. TRULICITY [Concomitant]
     Active Substance: DULAGLUTIDE
  24. DIAZEPAM. [Concomitant]
     Active Substance: DIAZEPAM
  25. ILEVRO [Concomitant]
     Active Substance: NEPAFENAC
  26. AZITHROMYCIN ANHYDROUS. [Concomitant]
     Active Substance: AZITHROMYCIN ANHYDROUS
  27. THOMPSON [Concomitant]
  28. PREVACID [Suspect]
     Active Substance: LANSOPRAZOLE
     Indication: GASTROOESOPHAGEAL REFLUX DISEASE
     Dosage: GENERIC
     Route: 065
     Dates: start: 20091028, end: 20120424
  29. HYDROCHLOROTHIAZIDE. [Concomitant]
     Active Substance: HYDROCHLOROTHIAZIDE
  30. DICLOFENAC [Concomitant]
     Active Substance: DICLOFENAC
  31. OMEPRAZOLE. [Suspect]
     Active Substance: OMEPRAZOLE
     Indication: GASTROOESOPHAGEAL REFLUX DISEASE
     Dosage: GENERIC
     Route: 048
     Dates: start: 20121227, end: 20141010
  32. OXYCODONE/ASA [Concomitant]
  33. SIMVASTATIN. [Concomitant]
     Active Substance: SIMVASTATIN
  34. TRAZODONE [Concomitant]
     Active Substance: TRAZODONE HYDROCHLORIDE
  35. METOPROLOL SUCCINATE. [Concomitant]
     Active Substance: METOPROLOL SUCCINATE
  36. LANTUS SOLOSTAR [Concomitant]
     Active Substance: INSULIN GLARGINE
  37. WALGREENS [Concomitant]
  38. LOSARTAN. [Concomitant]
     Active Substance: LOSARTAN
  39. CICLOPIROX. [Concomitant]
     Active Substance: CICLOPIROX
  40. FUROSEMIDE. [Concomitant]
     Active Substance: FUROSEMIDE
  41. VOLTAREN [Concomitant]
     Active Substance: DICLOFENAC SODIUM
  42. VITAMIN D2 [Concomitant]
     Active Substance: ERGOCALCIFEROL
  43. METOPROLOL TARTRATE. [Concomitant]
     Active Substance: METOPROLOL TARTRATE
  44. BESIVANCE [Concomitant]
     Active Substance: BESIFLOXACIN
  45. PREDNISONE. [Concomitant]
     Active Substance: PREDNISONE

REACTIONS (6)
  - Hyperkalaemia [Unknown]
  - Hyperparathyroidism secondary [Unknown]
  - Nephrogenic anaemia [Unknown]
  - End stage renal disease [Unknown]
  - Acute kidney injury [Unknown]
  - Chronic kidney disease [Not Recovered/Not Resolved]

NARRATIVE: CASE EVENT DATE: 20160518
